FAERS Safety Report 22723366 (Version 28)
Quarter: 2025Q1

REPORT INFORMATION
  Report Type: Spontaneous
  Country: CA (occurrence: CA)
  Receive Date: 20230719
  Receipt Date: 20250315
  Transmission Date: 20250408
  Serious: Yes (Other)
  Sender: CELLTRION
  Company Number: CA-CELLTRION INC.-2023CA011129

PATIENT

DRUGS (16)
  1. INFLECTRA [Suspect]
     Active Substance: INFLIXIMAB-DYYB
     Indication: Crohn^s disease
     Route: 042
     Dates: start: 20230511
  2. INFLECTRA [Suspect]
     Active Substance: INFLIXIMAB-DYYB
     Route: 042
     Dates: start: 20230621
  3. INFLECTRA [Suspect]
     Active Substance: INFLIXIMAB-DYYB
     Route: 042
     Dates: start: 20230816
  4. INFLECTRA [Suspect]
     Active Substance: INFLIXIMAB-DYYB
     Route: 042
     Dates: start: 20231020
  5. INFLECTRA [Suspect]
     Active Substance: INFLIXIMAB-DYYB
     Route: 042
     Dates: start: 20231213
  6. INFLECTRA [Suspect]
     Active Substance: INFLIXIMAB-DYYB
     Route: 042
     Dates: start: 20240207
  7. INFLECTRA [Suspect]
     Active Substance: INFLIXIMAB-DYYB
     Route: 042
     Dates: start: 20240403
  8. INFLECTRA [Suspect]
     Active Substance: INFLIXIMAB-DYYB
     Route: 042
     Dates: start: 20240531
  9. INFLECTRA [Suspect]
     Active Substance: INFLIXIMAB-DYYB
     Route: 042
     Dates: start: 20240724
  10. INFLECTRA [Suspect]
     Active Substance: INFLIXIMAB-DYYB
     Route: 042
     Dates: start: 20240724
  11. INFLECTRA [Suspect]
     Active Substance: INFLIXIMAB-DYYB
     Route: 042
     Dates: start: 20240918
  12. INFLECTRA [Suspect]
     Active Substance: INFLIXIMAB-DYYB
     Route: 042
     Dates: start: 20241113
  13. INFLECTRA [Suspect]
     Active Substance: INFLIXIMAB-DYYB
     Route: 042
     Dates: start: 20250116
  14. INFLECTRA [Suspect]
     Active Substance: INFLIXIMAB-DYYB
     Route: 042
     Dates: start: 20250305
  15. APIXABAN [Concomitant]
     Active Substance: APIXABAN
     Route: 065
     Dates: start: 20240815
  16. ENTYVIO [Concomitant]
     Active Substance: VEDOLIZUMAB

REACTIONS (37)
  - Shoulder fracture [Not Recovered/Not Resolved]
  - Tibia fracture [Not Recovered/Not Resolved]
  - Choking [Recovering/Resolving]
  - Increased viscosity of upper respiratory secretion [Not Recovered/Not Resolved]
  - Nasal congestion [Recovering/Resolving]
  - Speech disorder [Recovering/Resolving]
  - Uveitis [Recovered/Resolved]
  - Tendon rupture [Recovering/Resolving]
  - Thrombosis [Recovering/Resolving]
  - Dysphonia [Recovering/Resolving]
  - Nasal disorder [Recovering/Resolving]
  - Dysphagia [Not Recovered/Not Resolved]
  - Dyspnoea [Recovering/Resolving]
  - Sensation of foreign body [Unknown]
  - Illness [Not Recovered/Not Resolved]
  - Sinus headache [Not Recovered/Not Resolved]
  - Sinus congestion [Not Recovered/Not Resolved]
  - Head discomfort [Unknown]
  - Drug level above therapeutic [Recovered/Resolved]
  - Aphthous ulcer [Recovered/Resolved]
  - Sinus pain [Not Recovered/Not Resolved]
  - Urinary tract infection [Unknown]
  - Pharyngitis [Unknown]
  - Sinusitis [Unknown]
  - Arthralgia [Recovered/Resolved]
  - Nausea [Not Recovered/Not Resolved]
  - Headache [Not Recovered/Not Resolved]
  - Abdominal discomfort [Recovering/Resolving]
  - Rash pruritic [Unknown]
  - Eczema [Unknown]
  - Drug hypersensitivity [Unknown]
  - Condition aggravated [Recovering/Resolving]
  - Pyrexia [Recovered/Resolved]
  - Anaemia [Unknown]
  - COVID-19 [Recovering/Resolving]
  - Infection [Unknown]
  - Off label use [Unknown]

NARRATIVE: CASE EVENT DATE: 20230101
